FAERS Safety Report 6635383-5 (Version None)
Quarter: 2010Q1

REPORT INFORMATION
  Report Type: 
  Country: None (occurrence: None)
  Receive Date: 20100311
  Receipt Date: 20100311
  Transmission Date: 20100710
  Serious: Yes (Hospitalization)
  Sender: FDA-Public Use
  Company Number: None

PATIENT
  Sex: Female

DRUGS (7)
  1. INSULIN GLARGINE 100 UNITS/ML SANOFI-AVENTIS [Suspect]
     Indication: DIABETES MELLITUS
     Dosage: 25 UNITS DAILY AT BEDTIME SQ
     Route: 058
  2. LABETALOL HCL [Concomitant]
  3. REGULAR INSULIN [Concomitant]
  4. ESOMEPRAZOLE [Concomitant]
  5. HYDROCODONE [Concomitant]
  6. CALCIUM ACETATE [Concomitant]
  7. CLONAZEPAM [Concomitant]

REACTIONS (2)
  - HYPOGLYCAEMIC ENCEPHALOPATHY [None]
  - MENTAL STATUS CHANGES [None]
